FAERS Safety Report 7412439-0 (Version None)
Quarter: 2011Q2

REPORT INFORMATION
  Report Type: 
  Country: None (occurrence: None)
  Receive Date: 20110413
  Receipt Date: 20110406
  Transmission Date: 20111010
  Serious: Yes (Death)
  Sender: FDA-Public Use
  Company Number: PHHY2011FR29935

PATIENT
  Age: 59 Year
  Sex: Male
  Weight: 110 kg

DRUGS (8)
  1. LEPONEX [Suspect]
     Dosage: 75 MG, DAILY
     Dates: start: 20110322
  2. DEPAKOTE [Concomitant]
     Dosage: 500 MG, BID
  3. PROPRANOLOL [Concomitant]
     Indication: TREMOR
  4. BROMAZEPAM [Concomitant]
  5. LEPONEX [Suspect]
     Indication: DYSKINESIA
     Dosage: 50 MG, DAILY
     Dates: start: 20110308
  6. ABILIFY [Concomitant]
     Indication: BIPOLAR DISORDER
  7. ATARAX [Concomitant]
  8. LORMETAZEPAM [Concomitant]

REACTIONS (6)
  - SEDATION [None]
  - MALAISE [None]
  - HYPERHIDROSIS [None]
  - THIRST [None]
  - FATIGUE [None]
  - DEATH [None]
